FAERS Safety Report 19382254 (Version 2)
Quarter: 2022Q4

REPORT INFORMATION
  Report Type: Spontaneous
  Country: CA (occurrence: CA)
  Receive Date: 20210607
  Receipt Date: 20221012
  Transmission Date: 20230113
  Serious: Yes (Hospitalization, Other)
  Sender: FDA-Public Use
  Company Number: CA-PFM-2021-05419

PATIENT

DRUGS (6)
  1. PROPRANOLOL [Suspect]
     Active Substance: PROPRANOLOL HYDROCHLORIDE
     Indication: Product used for unknown indication
     Dosage: 40 MG,ONCE DAILY
     Route: 048
  2. PROPRANOLOL [Suspect]
     Active Substance: PROPRANOLOL HYDROCHLORIDE
     Indication: Tremor
     Dosage: 40 ML, QD (1/DAY)
     Route: 048
     Dates: start: 20191219, end: 20200913
  3. Brimonidine ophthalmic [Concomitant]
     Indication: Product used for unknown indication
     Dosage: ONE DROP IN BOTH EYES DAILY
     Route: 065
  4. LATANOPROST\TIMOLOL [Concomitant]
     Active Substance: LATANOPROST\TIMOLOL
     Indication: Product used for unknown indication
     Dosage: 50 MCG/5 MG/ML, ONE DROP IN BOTH EYES Q.A.M
     Route: 065
  5. OMEPRAZOLE [Concomitant]
     Active Substance: OMEPRAZOLE
     Indication: Product used for unknown indication
     Dosage: 20 MG, ONCE DAILY 30 MINUTES BEFORE BREAKFAST
     Route: 065
  6. TOLTERODINE [Concomitant]
     Active Substance: TOLTERODINE
     Indication: Product used for unknown indication
     Dosage: 4 MG, Q.A.M
     Route: 048

REACTIONS (6)
  - Bradycardia [Unknown]
  - Syncope [Unknown]
  - Loss of consciousness [Unknown]
  - Hypotension [Unknown]
  - Product use issue [Unknown]
  - Off label use [Unknown]

NARRATIVE: CASE EVENT DATE: 20200913
